FAERS Safety Report 24071631 (Version 1)
Quarter: 2024Q3

REPORT INFORMATION
  Report Type: Spontaneous
  Country: US (occurrence: US)
  Receive Date: 20240710
  Receipt Date: 20240710
  Transmission Date: 20241017
  Serious: No
  Sender: ROCHE
  Company Number: US-ROCHE-3547050

PATIENT

DRUGS (2)
  1. EVRYSDI [Suspect]
     Active Substance: RISDIPLAM
     Indication: Product used for unknown indication
     Route: 065
  2. SPINRAZA [Concomitant]
     Active Substance: NUSINERSEN

REACTIONS (2)
  - Bladder disorder [Not Recovered/Not Resolved]
  - Micturition urgency [Not Recovered/Not Resolved]
